FAERS Safety Report 21464466 (Version 1)
Quarter: 2022Q4

REPORT INFORMATION
  Report Type: Report from Study
  Country: US (occurrence: US)
  Receive Date: 20221017
  Receipt Date: 20221017
  Transmission Date: 20230113
  Serious: No
  Sender: FDA-Public Use
  Company Number: US-ABBVIE-4162444

PATIENT
  Sex: Female

DRUGS (2)
  1. HUMIRA [Suspect]
     Active Substance: ADALIMUMAB
     Indication: Psoriasis
     Route: 058
  2. Johnson + Johnson covid-19 vaccination [Concomitant]
     Indication: COVID-19 immunisation
     Dosage: 1 IN ONCE?1ST DOSE
     Route: 030
     Dates: start: 20200520, end: 20200520

REACTIONS (1)
  - Intentional product misuse [Recovered/Resolved]
